FAERS Safety Report 21632979 (Version 2)
Quarter: 2022Q4

REPORT INFORMATION
  Report Type: Spontaneous
  Country: PA (occurrence: PA)
  Receive Date: 20221123
  Receipt Date: 20221126
  Transmission Date: 20230112
  Serious: Yes (Disabling, Other)
  Sender: FDA-Public Use
  Company Number: PA-KOREA IPSEN Pharma-2022-31681

PATIENT
  Age: 65 Year
  Sex: Female
  Weight: 53.6 kg

DRUGS (4)
  1. DYSPORT [Suspect]
     Active Substance: ABOBOTULINUMTOXINA
     Indication: Skin wrinkling
     Route: 065
     Dates: start: 20221115, end: 20221115
  2. DYSPORT [Suspect]
     Active Substance: ABOBOTULINUMTOXINA
     Indication: Skin disorder
     Dosage: 100 TO 120 U
     Route: 030
     Dates: start: 20150812
  3. DYSPORT [Suspect]
     Active Substance: ABOBOTULINUMTOXINA
     Indication: Basal cell carcinoma
  4. DYSPORT [Suspect]
     Active Substance: ABOBOTULINUMTOXINA
     Indication: Actinic keratosis

REACTIONS (4)
  - Syncope [Recovered/Resolved]
  - Memory impairment [Recovered/Resolved]
  - Depression [Unknown]
  - Headache [Recovered/Resolved]
